FAERS Safety Report 12541756 (Version 2)
Quarter: 2016Q3

REPORT INFORMATION
  Report Type: Spontaneous
  Country: US (occurrence: US)
  Receive Date: 20160708
  Receipt Date: 20160715
  Transmission Date: 20161109
  Serious: Yes (Hospitalization)
  Sender: FDA-Public Use
  Company Number: US-TEVA-673266USA

PATIENT
  Age: 56 Year
  Sex: Female

DRUGS (6)
  1. SALBUTAMOL [Suspect]
     Active Substance: ALBUTEROL
     Route: 055
  2. METFORMIN [Concomitant]
     Active Substance: METFORMIN HYDROCHLORIDE
     Route: 065
  3. METHYLPREDNISOLONE. [Suspect]
     Active Substance: METHYLPREDNISOLONE
     Dosage: 125MG
     Route: 042
  4. SALBUTAMOL [Suspect]
     Active Substance: ALBUTEROL
     Dosage: 3-4 TIMES A DAY
     Route: 065
  5. SALBUTAMOL, IPRATROPIUM BROMIDE [Suspect]
     Active Substance: ALBUTEROL\IPRATROPIUM
     Dosage: 3ML OF 0.5-3MG/3ML AT EVERY 4 HOURS
     Route: 065
  6. SALBUTAMOL SULFATE [Suspect]
     Active Substance: ALBUTEROL SULFATE
     Dosage: 7.5MG (5 MG/ML)
     Route: 065

REACTIONS (1)
  - Lactic acidosis [Recovering/Resolving]
